FAERS Safety Report 18219835 (Version 1)
Quarter: 2020Q3

REPORT INFORMATION
  Report Type: Spontaneous
  Country: US (occurrence: US)
  Receive Date: 20200901
  Receipt Date: 20200901
  Transmission Date: 20201103
  Serious: Yes (Death, Other)
  Sender: FDA-Public Use
  Company Number: US-GILEAD-2020-0492912

PATIENT
  Age: 89 Year
  Sex: Female
  Weight: 88.5 kg

DRUGS (7)
  1. REMDESIVIR. [Suspect]
     Active Substance: REMDESIVIR
     Indication: COVID-19 PNEUMONIA
     Dosage: 100 MG, QD
     Route: 042
     Dates: start: 20200806, end: 20200810
  2. ZINC SULFATE. [Concomitant]
     Active Substance: ZINC SULFATE
     Dosage: UNK
     Dates: start: 20200806, end: 20200819
  3. AMIODARONE [Concomitant]
     Active Substance: AMIODARONE
     Dosage: UNK
     Dates: start: 20200814, end: 20200823
  4. PLASMA [Concomitant]
     Active Substance: HUMAN PLASMA
     Dosage: UNK
     Dates: start: 20200806, end: 20200806
  5. DEXAMETHASONE. [Concomitant]
     Active Substance: DEXAMETHASONE
     Dosage: UNK
     Dates: start: 20200805, end: 20200814
  6. PANTOPRAZOLE [Concomitant]
     Active Substance: PANTOPRAZOLE
     Dosage: UNK
     Dates: start: 20200812, end: 20200823
  7. EZETIMIBE. [Concomitant]
     Active Substance: EZETIMIBE
     Dosage: UNK
     Dates: start: 20200806, end: 20200823

REACTIONS (12)
  - Acute right ventricular failure [Unknown]
  - Hypoxia [Unknown]
  - Death [Fatal]
  - Acute kidney injury [Unknown]
  - Haematoma [Unknown]
  - Hypotension [Unknown]
  - Chronic kidney disease [Unknown]
  - Heparin-induced thrombocytopenia [Unknown]
  - Delirium [Unknown]
  - Renal cortical necrosis [Unknown]
  - Pulmonary embolism [Unknown]
  - Hypernatraemia [Unknown]

NARRATIVE: CASE EVENT DATE: 20200820
